FAERS Safety Report 9388773 (Version 1)
Quarter: 2013Q3

REPORT INFORMATION
  Report Type: Spontaneous
  Country: AT (occurrence: AT)
  Receive Date: 20130708
  Receipt Date: 20130708
  Transmission Date: 20140515
  Serious: Yes (Hospitalization)
  Sender: FDA-Public Use
  Company Number: AT-ABBOTT-13P-009-1113883-00

PATIENT
  Sex: Male

DRUGS (1)
  1. HUMIRA [Suspect]
     Indication: PSORIATIC ARTHROPATHY
     Dates: start: 20130321

REACTIONS (3)
  - Prostatic disorder [Not Recovered/Not Resolved]
  - Renal disorder [Not Recovered/Not Resolved]
  - Urinary retention [Not Recovered/Not Resolved]
